FAERS Safety Report 9643246 (Version 1)
Quarter: 2013Q4

REPORT INFORMATION
  Report Type: Spontaneous
  Country: AT (occurrence: AT)
  Receive Date: 20131024
  Receipt Date: 20131024
  Transmission Date: 20140711
  Serious: Yes (Hospitalization, Other)
  Sender: FDA-Public Use
  Company Number: AT-ELI_LILLY_AND_COMPANY-AT201310004906

PATIENT
  Age: 77 Year
  Sex: Female

DRUGS (22)
  1. ZYPREXA VELOTAB [Suspect]
     Indication: PRODUCT USED FOR UNKNOWN INDICATION
     Dosage: 10 MG, QD
     Dates: start: 20130409, end: 20130519
  2. ZYPREXA VELOTAB [Suspect]
     Dosage: 2.5 MG, QD
     Dates: start: 20130327, end: 20130401
  3. ZYPREXA VELOTAB [Suspect]
     Dosage: 5 MG, QD
     Dates: start: 20130402, end: 20130407
  4. ZYPREXA VELOTAB [Suspect]
     Dosage: 7.5 MG, QD
     Dates: start: 20130408, end: 20130409
  5. MIRTABENE [Concomitant]
     Indication: PRODUCT USED FOR UNKNOWN INDICATION
     Dosage: 60 MG, QD
     Route: 065
     Dates: start: 201302, end: 20130328
  6. MIRTABENE [Concomitant]
     Dosage: 45 MG, QD
     Dates: start: 20130329
  7. SEROXAT [Concomitant]
     Indication: PRODUCT USED FOR UNKNOWN INDICATION
     Dosage: 20 MG, QD
     Route: 065
     Dates: start: 201210, end: 20130408
  8. SEROXAT [Concomitant]
     Dosage: 30 MG, QD
     Dates: start: 20130409
  9. LYRICA [Concomitant]
     Indication: PRODUCT USED FOR UNKNOWN INDICATION
     Dosage: 25 MG, QD
     Route: 065
     Dates: start: 20130419, end: 20130509
  10. LYRICA [Concomitant]
     Dosage: 50 MG, QD
     Dates: start: 20130510
  11. RIVOTRIL [Concomitant]
     Indication: PRODUCT USED FOR UNKNOWN INDICATION
     Dosage: 0.5 MG, QD
     Route: 065
     Dates: start: 20130406, end: 20130407
  12. RIVOTRIL [Concomitant]
     Dosage: 0.75 MG, QD
     Dates: start: 20130408, end: 20130424
  13. RIVOTRIL [Concomitant]
     Dosage: 0.5 MG, QD
     Dates: start: 20130425, end: 20130509
  14. RIVOTRIL [Concomitant]
     Dosage: 0.25 MG, QD
     Dates: start: 20130510
  15. BELOC [Concomitant]
     Indication: PRODUCT USED FOR UNKNOWN INDICATION
     Dosage: 50 MG, QD
     Route: 065
     Dates: start: 201211, end: 20130319
  16. BELOC [Concomitant]
     Dosage: 25 MG, QD
     Dates: start: 20130320, end: 20130321
  17. BELOC [Concomitant]
     Dosage: 25 MG, QD
     Dates: start: 20130326
  18. PANTOLOC                           /01263204/ [Concomitant]
     Indication: PRODUCT USED FOR UNKNOWN INDICATION
     Dosage: 40 MG, QD
     Route: 065
     Dates: start: 201211
  19. EUTHYROX [Concomitant]
     Indication: PRODUCT USED FOR UNKNOWN INDICATION
     Dosage: 1 DF, QD
     Route: 065
     Dates: start: 201211
  20. CIPROXIN [Concomitant]
     Indication: PRODUCT USED FOR UNKNOWN INDICATION
     Dosage: 500 MG, QD
     Route: 065
     Dates: start: 20130425, end: 20130427
  21. ANTIBIOPHILUS [Concomitant]
     Indication: PRODUCT USED FOR UNKNOWN INDICATION
     Dosage: 2 DF, QD
     Route: 065
     Dates: start: 20130425, end: 20130427
  22. MULTIBIONTA [Concomitant]
     Indication: PRODUCT USED FOR UNKNOWN INDICATION
     Dosage: 1 DF, QD
     Route: 065
     Dates: start: 20130420

REACTIONS (7)
  - Choking [Recovered/Resolved]
  - Dysphagia [Recovered/Resolved]
  - Tooth disorder [Unknown]
  - Cerebral microangiopathy [Unknown]
  - Gastritis [Unknown]
  - Hyperthyroidism [Unknown]
  - Hypertension [Unknown]
